FAERS Safety Report 11087963 (Version 1)
Quarter: 2015Q2

REPORT INFORMATION
  Report Type: Report from Study
  Country: US (occurrence: US)
  Receive Date: 20150504
  Receipt Date: 20150504
  Transmission Date: 20150821
  Serious: Yes (Hospitalization, Other)
  Sender: FDA-Public Use
  Company Number: PHEH2015US007899

PATIENT
  Sex: Female
  Weight: 59.86 kg

DRUGS (3)
  1. SOLU-MEDROL [Concomitant]
     Active Substance: METHYLPREDNISOLONE SODIUM SUCCINATE
     Indication: PRODUCT USED FOR UNKNOWN INDICATION
     Route: 065
  2. GILENYA [Suspect]
     Active Substance: FINGOLIMOD HYDROCHLORIDE
     Indication: MULTIPLE SCLEROSIS
     Dosage: 0.5 MG, QD
     Route: 048
     Dates: start: 20140307
  3. NEURONTIN [Concomitant]
     Active Substance: GABAPENTIN
     Indication: PRODUCT USED FOR UNKNOWN INDICATION
     Route: 065

REACTIONS (12)
  - Clumsiness [Unknown]
  - Multiple sclerosis relapse [Unknown]
  - Vision blurred [Unknown]
  - Headache [Unknown]
  - Pain [Unknown]
  - Diplopia [Unknown]
  - Partial seizures [Unknown]
  - Visual acuity reduced [Unknown]
  - Paraesthesia [Unknown]
  - Back pain [Unknown]
  - Hypoaesthesia [Unknown]
  - Tandem gait test abnormal [Unknown]
